FAERS Safety Report 9948366 (Version 1)
Quarter: 2014Q1

REPORT INFORMATION
  Report Type: Spontaneous
  Country: US (occurrence: US)
  Receive Date: 20140303
  Receipt Date: 20140303
  Transmission Date: 20141002
  Serious: No
  Sender: FDA-Public Use
  Company Number: US-ABBVIE-13P-163-1057217-00

PATIENT
  Sex: Female
  Weight: 68.1 kg

DRUGS (5)
  1. HUMIRA [Suspect]
     Indication: COLITIS ULCERATIVE
     Dosage: ONE DOSE
     Dates: start: 201301, end: 201301
  2. HUMIRA [Suspect]
     Dosage: ONE DOSE
  3. HUMIRA [Suspect]
  4. PREDNISONE [Concomitant]
     Indication: COLITIS ULCERATIVE
     Dosage: TRYING TO WEAN
  5. UNKNOWN MEDICATION [Concomitant]
     Indication: HYPERTENSION

REACTIONS (3)
  - Pollakiuria [Not Recovered/Not Resolved]
  - Fatigue [Not Recovered/Not Resolved]
  - Drug ineffective [Not Recovered/Not Resolved]
